FAERS Safety Report 6233361-1 (Version None)
Quarter: 2009Q2

REPORT INFORMATION
  Report Type: 
  Country: None (occurrence: None)
  Receive Date: 20090616
  Receipt Date: 20090616
  Transmission Date: 20091009
  Serious: Yes (Hospitalization)
  Sender: FDA-Public Use
  Company Number: None

PATIENT
  Sex: Female
  Weight: 76.6 kg

DRUGS (11)
  1. CARBOPLATIN [Suspect]
     Dosage: 567 MG
     Dates: end: 20090521
  2. TAXOL [Suspect]
     Dosage: 344 NG
     Dates: end: 20090521
  3. CALCIUM [Concomitant]
  4. DOCUSATE [Concomitant]
  5. FOLIC ACID [Concomitant]
  6. GLUCOSAMINE [Concomitant]
  7. METHOTREXATE [Concomitant]
  8. METOPROLOL SUCCINATE [Concomitant]
  9. MIRALAX [Concomitant]
  10. PRILOSEC [Concomitant]
  11. PROMETHAZINE [Concomitant]

REACTIONS (4)
  - ABDOMINAL DISTENSION [None]
  - ASTHENIA [None]
  - NAUSEA [None]
  - VOMITING [None]
